FAERS Safety Report 8459297-3 (Version None)
Quarter: 2012Q2

REPORT INFORMATION
  Report Type: 
  Country: None (occurrence: None)
  Receive Date: 20120615
  Receipt Date: 20120605
  Transmission Date: 20120825
  Serious: No
  Sender: FDA-Public Use
  Company Number: IT-GDP-12413852

PATIENT
  Sex: Female

DRUGS (4)
  1. ATENOLOL + CLORTALIDONA [Concomitant]
  2. CETAPHIL RESTORADERM CLEANSER (CETYL ALCOHOL;; PROPYLENE GLYCOL; STEAR [Suspect]
     Indication: THERAPEUTIC SKIN CARE TOPICAL
     Dosage: 1 DF QD TOPICAL
     Route: 061
     Dates: start: 20120510, end: 20120512
  3. METRONIDAZOLE [Suspect]
     Indication: DERMATITIS
     Dosage: 1 DF BID TOPICAL
     Route: 061
     Dates: start: 20120510, end: 20120512
  4. AMITRIPTYLINE HCL [Concomitant]

REACTIONS (3)
  - SKIN EXFOLIATION [None]
  - ERYTHEMA [None]
  - DERMATITIS CONTACT [None]
